FAERS Safety Report 13077647 (Version 1)
Quarter: 2016Q4

REPORT INFORMATION
  Report Type: Spontaneous
  Country: IT (occurrence: IT)
  Receive Date: 20161231
  Receipt Date: 20161231
  Transmission Date: 20170207
  Serious: Yes (Hospitalization)
  Sender: FDA-Public Use
  Company Number: IT-AMGEN-ITASP2016183452

PATIENT
  Sex: Male

DRUGS (1)
  1. CINACALCET HCL [Suspect]
     Active Substance: CINACALCET HYDROCHLORIDE
     Indication: EXPOSURE DURING PREGNANCY
     Route: 064

REACTIONS (3)
  - Hypocalcaemia [Unknown]
  - Hyperphosphataemia [Unknown]
  - Premature baby [Unknown]
